FAERS Safety Report 8057642-4 (Version None)
Quarter: 2012Q1

REPORT INFORMATION
  Report Type: 
  Country: None (occurrence: None)
  Receive Date: 20120120
  Receipt Date: 20120109
  Transmission Date: 20120608
  Serious: No
  Sender: FDA-Public Use
  Company Number: US-BIOGENIDEC-2011BI047834

PATIENT
  Age: 62 Year
  Sex: Female

DRUGS (1)
  1. TYSABRI [Suspect]
     Indication: MULTIPLE SCLEROSIS
     Route: 042
     Dates: start: 20111215

REACTIONS (8)
  - ABDOMINAL DISCOMFORT [None]
  - DYSURIA [None]
  - CYSTITIS [None]
  - POLLAKIURIA [None]
  - URINE OUTPUT DECREASED [None]
  - HEADACHE [None]
  - BLOOD URINE PRESENT [None]
  - URINARY TRACT INFECTION [None]
